FAERS Safety Report 9208830 (Version 1)
Quarter: 2013Q1

REPORT INFORMATION
  Report Type: Spontaneous
  Country: US (occurrence: None)
  Receive Date: 20120817
  Receipt Date: 20120817
  Transmission Date: 20140127
  Serious: Yes (Other)
  Sender: FDA-Public Use
  Company Number: 201111019

PATIENT
  Age: 57 Year
  Sex: Male

DRUGS (3)
  1. LIORESAL INTRATHECAL [Suspect]
     Indication: MUSCLE SPASTICITY
  2. DILAUDID [Concomitant]
  3. MARCAINE [Concomitant]

REACTIONS (1)
  - Drug withdrawal syndrome [None]
